FAERS Safety Report 25996678 (Version 1)
Quarter: 2025Q4

REPORT INFORMATION
  Report Type: Spontaneous
  Country: US (occurrence: None)
  Receive Date: 20251104
  Receipt Date: 20251104
  Transmission Date: 20260117
  Serious: Yes (Hospitalization)
  Sender: FDA-CTU
  Company Number: None

PATIENT
  Sex: Male

DRUGS (11)
  1. LENALIDOMIDE [Suspect]
     Active Substance: LENALIDOMIDE
     Indication: Plasma cell myeloma
     Dosage: FREQUENCY : DAILY;?
     Route: 048
     Dates: start: 20250805
  2. ACYCLOVIR CAP 200MG [Concomitant]
  3. ANORO ELLI PT AER 62.5-25 [Concomitant]
  4. ASPIRIN CHW 81MG [Concomitant]
  5. BIOTIN CAP 5000MCG [Concomitant]
  6. CENTRUM TAB SILVER [Concomitant]
  7. CETIRIZINE HCL [Concomitant]
     Active Substance: CETIRIZINE HYDROCHLORIDE
  8. EFFEXOR TAB 37.SMG [Concomitant]
  9. ELIQUIS TAB SMG [Concomitant]
  10. FUROSEMIDE [Concomitant]
     Active Substance: FUROSEMIDE
  11. KRILL OIL CAP 300MG [Concomitant]

REACTIONS (4)
  - Pneumonia [None]
  - Red blood cell count decreased [None]
  - White blood cell count decreased [None]
  - Therapy interrupted [None]
